FAERS Safety Report 20152690 (Version 1)
Quarter: 2021Q4

REPORT INFORMATION
  Report Type: Spontaneous
  Country: US (occurrence: US)
  Receive Date: 20211206
  Receipt Date: 20211206
  Transmission Date: 20220304
  Serious: No
  Sender: FDA-Public Use
  Company Number: US-NOVAST LABORATORIES INC.-2021NOV000280

PATIENT

DRUGS (5)
  1. CARISOPRODOL [Suspect]
     Active Substance: CARISOPRODOL
     Indication: Muscle spasms
     Dosage: UNK UNK, QD, AT NIGHT
     Route: 048
     Dates: end: 20210621
  2. CARISOPRODOL [Suspect]
     Active Substance: CARISOPRODOL
     Indication: Pain
  3. AMITRIPTYLINE [Concomitant]
     Active Substance: AMITRIPTYLINE
     Indication: Product used for unknown indication
     Dosage: UNK
     Route: 065
  4. SYNTHROID [Concomitant]
     Active Substance: LEVOTHYROXINE SODIUM
     Indication: Product used for unknown indication
     Dosage: UNK
     Route: 065
  5. VITAMIN D NOS [Concomitant]
     Active Substance: VITAMIN D NOS
     Indication: Product used for unknown indication
     Dosage: UNK
     Route: 065

REACTIONS (2)
  - Dizziness [Recovered/Resolved]
  - Middle insomnia [Recovered/Resolved]
